FAERS Safety Report 11921178 (Version 2)
Quarter: 2016Q3

REPORT INFORMATION
  Report Type: Spontaneous
  Country: US (occurrence: US)
  Receive Date: 20160115
  Receipt Date: 20160718
  Transmission Date: 20161109
  Serious: No
  Sender: FDA-Public Use
  Company Number: US-ASTELLAS-2015US042840

PATIENT
  Sex: Female

DRUGS (8)
  1. TOVIAZ [Suspect]
     Active Substance: FESOTERODINE FUMARATE
     Indication: BLADDER IRRITATION
  2. TOVIAZ [Suspect]
     Active Substance: FESOTERODINE FUMARATE
     Indication: POLLAKIURIA
  3. MYRBETRIQ [Suspect]
     Active Substance: MIRABEGRON
     Indication: BLADDER IRRITATION
     Dosage: UNK UNK, UNKNOWN FREQ.
     Route: 065
  4. MYRBETRIQ [Suspect]
     Active Substance: MIRABEGRON
     Indication: POLLAKIURIA
  5. OXYBUTYNIN [Suspect]
     Active Substance: OXYBUTYNIN
     Indication: PRODUCT USED FOR UNKNOWN INDICATION
     Dosage: UNK UNK, UNKNOWN FREQ.
     Route: 065
  6. TOVIAZ [Suspect]
     Active Substance: FESOTERODINE FUMARATE
     Indication: HYPERTONIC BLADDER
     Route: 048
     Dates: start: 20151003, end: 20151205
  7. MYRBETRIQ [Suspect]
     Active Substance: MIRABEGRON
     Indication: MICTURITION URGENCY
     Route: 065
  8. TOVIAZ [Suspect]
     Active Substance: FESOTERODINE FUMARATE
     Indication: MICTURITION URGENCY

REACTIONS (1)
  - Drug ineffective [Unknown]
